FAERS Safety Report 9171666 (Version 1)
Quarter: 2013Q1

REPORT INFORMATION
  Report Type: Spontaneous
  Country: ES (occurrence: ES)
  Receive Date: 20130319
  Receipt Date: 20130319
  Transmission Date: 20140127
  Serious: Yes (Death, Hospitalization)
  Sender: FDA-Public Use
  Company Number: ES-ELI_LILLY_AND_COMPANY-ES201303004864

PATIENT
  Sex: Male

DRUGS (1)
  1. FORSTEO [Suspect]
     Dosage: UNK, UNKNOWN
     Route: 065
     Dates: end: 2011

REACTIONS (2)
  - Death [Fatal]
  - Sepsis [Unknown]
